FAERS Safety Report 4689518-4 (Version None)
Quarter: 2005Q2

REPORT INFORMATION
  Report Type: 
  Country: None (occurrence: None)
  Receive Date: 20050608
  Receipt Date: 20050303
  Transmission Date: 20051028
  Serious: No
  Sender: FDA-Public Use
  Company Number: 2005-BP-03530BP

PATIENT
  Age: 64 Year
  Sex: Female

DRUGS (11)
  1. SPIRIVA [Suspect]
     Indication: CHRONIC OBSTRUCTIVE PULMONARY DISEASE
     Dosage: 18 MCG (18 MCG, 1 IN 1 D), IH
     Route: 055
     Dates: start: 20040601
  2. SPIRIVA [Suspect]
  3. PREDNISONE [Concomitant]
  4. ALTACE [Concomitant]
  5. ASPIRIN TAB [Concomitant]
  6. THEOPHYLLINE [Concomitant]
  7. TRICOR [Concomitant]
  8. ZYRTEC-D (CIRRUS) [Concomitant]
  9. PLAVIX [Concomitant]
  10. QUAIFED [Concomitant]
  11. PLAQUENIL [Concomitant]

REACTIONS (1)
  - UPPER RESPIRATORY TRACT INFECTION [None]
